FAERS Safety Report 8396458-6 (Version None)
Quarter: 2012Q2

REPORT INFORMATION
  Report Type: 
  Country: None (occurrence: None)
  Receive Date: 20120530
  Receipt Date: 20120521
  Transmission Date: 20120825
  Serious: Yes (Hospitalization)
  Sender: FDA-Public Use
  Company Number: JP-ALEXION PHARMACEUTICALS INC.-A201200289

PATIENT
  Age: 55 Year
  Sex: Female

DRUGS (4)
  1. BLOOD TRANSFUSION, AUXILIARY PRODUCTS [Concomitant]
     Dosage: 8 TIMES/ 16 UNITS
  2. SOLIRIS [Suspect]
     Indication: PAROXYSMAL NOCTURNAL HAEMOGLOBINURIA
     Dosage: 900 MG, Q2W
     Route: 042
     Dates: start: 20111124
  3. NORVASC [Concomitant]
     Dosage: 5 MG, QD
     Dates: start: 20070101
  4. BEZATOL [Concomitant]
     Dosage: 200 MG, QD
     Dates: start: 20070101

REACTIONS (1)
  - PANCREATITIS ACUTE [None]
